FAERS Safety Report 17632104 (Version 1)
Quarter: 2020Q2

REPORT INFORMATION
  Report Type: Spontaneous
  Country: US (occurrence: US)
  Receive Date: 20200403
  Receipt Date: 20200403
  Transmission Date: 20200713
  Serious: Yes (Disabling, Other)
  Sender: FDA-Public Use
  Company Number: None

PATIENT
  Age: 78 Year
  Sex: Female
  Weight: 67.13 kg

DRUGS (1)
  1. BEOVU [Suspect]
     Active Substance: BROLUCIZUMAB-DBLL
     Indication: MACULAR DEGENERATION
     Dosage: ?          OTHER ROUTE:EYE INJECTION?
     Dates: start: 20200115, end: 20200126

REACTIONS (7)
  - Eye pain [None]
  - Skin lesion [None]
  - Ocular hyperaemia [None]
  - Vision blurred [None]
  - Impaired driving ability [None]
  - Eye swelling [None]
  - Visual impairment [None]

NARRATIVE: CASE EVENT DATE: 20200126
